FAERS Safety Report 5950466-0 (Version None)
Quarter: 2008Q4

REPORT INFORMATION
  Report Type: 
  Country: None (occurrence: None)
  Receive Date: 20081112
  Receipt Date: 20081110
  Transmission Date: 20090506
  Serious: Yes (Other)
  Sender: FDA-Public Use
  Company Number: IT-BRISTOL-MYERS SQUIBB COMPANY-14402051

PATIENT
  Age: 4 Year
  Sex: Female

DRUGS (1)
  1. CYCLOPHOSPHAMIDE [Suspect]
     Indication: BONE MARROW TRANSPLANT

REACTIONS (4)
  - EPSTEIN-BARR VIRUS INFECTION [None]
  - GRAFT VERSUS HOST DISEASE [None]
  - RESPIRATORY FAILURE [None]
  - REVERSIBLE POSTERIOR LEUKOENCEPHALOPATHY SYNDROME [None]
